FAERS Safety Report 19771809 (Version 1)
Quarter: 2021Q3

REPORT INFORMATION
  Report Type: Spontaneous
  Country: JP (occurrence: JP)
  Receive Date: 20210901
  Receipt Date: 20210901
  Transmission Date: 20211014
  Serious: Yes (Hospitalization)
  Sender: FDA-Public Use
  Company Number: JP-PFIZER INC-202101093888

PATIENT
  Age: 73 Year
  Sex: Male

DRUGS (2)
  1. CELECOXIB. [Suspect]
     Active Substance: CELECOXIB
     Indication: CENTRAL PAIN SYNDROME
     Dosage: 200 MG
  2. LOXOPROFEN SODIUM [Suspect]
     Active Substance: LOXOPROFEN SODIUM
     Indication: CENTRAL PAIN SYNDROME
     Dosage: 60 MG

REACTIONS (3)
  - Dieulafoy^s vascular malformation [Recovered/Resolved]
  - Off label use [Unknown]
  - Mucosal erosion [Recovered/Resolved]
